FAERS Safety Report 9358274 (Version 2)
Quarter: 2013Q3

REPORT INFORMATION
  Report Type: Spontaneous
  Country: CZ (occurrence: CZ)
  Receive Date: 20130620
  Receipt Date: 20130703
  Transmission Date: 20140515
  Serious: Yes (Congenital Anomaly)
  Sender: FDA-Public Use
  Company Number: CZ-JNJFOC-20130607450

PATIENT
  Sex: Male

DRUGS (1)
  1. VERMOX [Suspect]
     Indication: FOETAL EXPOSURE DURING PREGNANCY
     Route: 015
     Dates: start: 20121008, end: 20121010

REACTIONS (1)
  - Congenital heart valve disorder [Not Recovered/Not Resolved]
